FAERS Safety Report 25437975 (Version 1)
Quarter: 2025Q2

REPORT INFORMATION
  Report Type: Report from Study
  Country: IN (occurrence: IN)
  Receive Date: 20250616
  Receipt Date: 20250616
  Transmission Date: 20250717
  Serious: Yes (Other)
  Sender: ROCHE
  Company Number: IN-ROCHE-10000309083

PATIENT
  Age: 59 Year
  Sex: Female

DRUGS (1)
  1. PHESGO [Suspect]
     Active Substance: HYALURONIDASE-ZZXF\PERTUZUMAB\TRASTUZUMAB
     Indication: Breast cancer metastatic
     Dosage: NEXT DOSE ON 17-MAY-2025 AND 09-JUN-2025
     Route: 058
     Dates: start: 20250405

REACTIONS (2)
  - Off label use [Unknown]
  - Biopsy breast [Unknown]

NARRATIVE: CASE EVENT DATE: 20250609
